FAERS Safety Report 10527621 (Version 1)
Quarter: 2014Q4

REPORT INFORMATION
  Report Type: Spontaneous
  Country: US (occurrence: US)
  Receive Date: 20141020
  Receipt Date: 20141020
  Transmission Date: 20150528
  Serious: No
  Sender: FDA-Public Use
  Company Number: US-PFIZER INC-2014284643

PATIENT
  Age: 51 Year
  Sex: Female
  Weight: 62.1 kg

DRUGS (1)
  1. TIKOSYN [Suspect]
     Active Substance: DOFETILIDE
     Indication: HEART RATE INCREASED
     Dosage: 125 UG, 2X/DAY
     Route: 048

REACTIONS (8)
  - Fat tissue increased [Unknown]
  - Dyspnoea [Unknown]
  - Blood pressure fluctuation [Unknown]
  - Activities of daily living impaired [Unknown]
  - Syncope [Unknown]
  - Dizziness [Unknown]
  - Chest pain [Unknown]
  - Euphoric mood [Unknown]

NARRATIVE: CASE EVENT DATE: 2014
